FAERS Safety Report 13333454 (Version 2)
Quarter: 2017Q2

REPORT INFORMATION
  Report Type: Spontaneous
  Country: TW (occurrence: TW)
  Receive Date: 20170314
  Receipt Date: 20170421
  Transmission Date: 20170830
  Serious: Yes (Hospitalization)
  Sender: FDA-Public Use
  Company Number: TW-ABBVIE-17P-153-1899609-00

PATIENT
  Sex: Female
  Weight: 66 kg

DRUGS (2)
  1. VIEKIRAX [Suspect]
     Active Substance: OMBITASVIR\PARITAPREVIR\RITONAVIR
     Indication: HEPATITIS C
     Dosage: ONCE A DAY
     Route: 048
     Dates: start: 20170210
  2. EXVIERA [Suspect]
     Active Substance: DASABUVIR
     Indication: HEPATITIS C
     Dosage: TWICE A DAY
     Route: 048
     Dates: start: 20170210

REACTIONS (1)
  - Influenza [Recovered/Resolved]
